FAERS Safety Report 5584271-4 (Version None)
Quarter: 2008Q1

REPORT INFORMATION
  Report Type: 
  Country: None (occurrence: None)
  Receive Date: 20080108
  Receipt Date: 20071231
  Transmission Date: 20080703
  Serious: Yes (Hospitalization)
  Sender: FDA-Public Use
  Company Number: B0489722A

PATIENT
  Age: 31 Year
  Sex: Male
  Weight: 75 kg

DRUGS (1)
  1. ARIXTRA [Suspect]
     Dosage: 2.5MG PER DAY
     Route: 058
     Dates: start: 20070611, end: 20070618

REACTIONS (1)
  - HAEMARTHROSIS [None]
